FAERS Safety Report 6148979-4 (Version None)
Quarter: 2009Q2

REPORT INFORMATION
  Report Type: 
  Country: None (occurrence: None)
  Receive Date: 20090408
  Receipt Date: 20090323
  Transmission Date: 20091009
  Serious: Yes (Life-Threatening, Hospitalization, Other)
  Sender: FDA-Public Use
  Company Number: US-PFIZER INC-2008091118

PATIENT
  Sex: Female
  Weight: 81.65 kg

DRUGS (7)
  1. BLINDED *PLACEBO [Suspect]
     Indication: PROCEDURAL PAIN
     Dosage: UNK
     Route: 048
     Dates: start: 20081027
  2. BLINDED PREGABALIN [Suspect]
     Indication: PROCEDURAL PAIN
     Dosage: UNK
     Route: 048
     Dates: start: 20081027
  3. DILAUDID [Suspect]
     Indication: ANALGESIC THERAPY
     Dosage: FREQUENCY/INTERVAL: ONCE
     Route: 042
     Dates: start: 20081028, end: 20081029
  4. VASERETIC [Concomitant]
     Route: 048
     Dates: start: 19800101
  5. GABAPENTIN [Concomitant]
     Route: 048
     Dates: start: 20080701
  6. HYDROCODONE BITARTRATE [Concomitant]
     Route: 048
     Dates: start: 20080210
  7. ADVIL [Concomitant]
     Route: 048
     Dates: start: 20080815

REACTIONS (1)
  - RESPIRATORY DEPRESSION [None]
